FAERS Safety Report 8490298-5 (Version None)
Quarter: 2012Q3

REPORT INFORMATION
  Report Type: 
  Country: None (occurrence: None)
  Receive Date: 20120705
  Receipt Date: 20120625
  Transmission Date: 20120928
  Serious: Yes (Hospitalization)
  Sender: FDA-Public Use
  Company Number: US-CELGENEUS-163-21660-12063571

PATIENT
  Sex: Female

DRUGS (2)
  1. ABRAXANE [Suspect]
     Route: 041
     Dates: start: 20120501
  2. PROGESTERONE [Concomitant]
     Route: 065

REACTIONS (6)
  - NAUSEA [None]
  - BLOOD MAGNESIUM DECREASED [None]
  - DEHYDRATION [None]
  - VOMITING [None]
  - DIARRHOEA [None]
  - BLOOD CALCIUM DECREASED [None]
